FAERS Safety Report 5629372-7 (Version None)
Quarter: 2008Q1

REPORT INFORMATION
  Report Type: 
  Country: None (occurrence: None)
  Receive Date: 20080213
  Receipt Date: 20080213
  Transmission Date: 20080703
  Serious: No
  Sender: FDA-Public Use
  Company Number: None

PATIENT
  Sex: Female

DRUGS (3)
  1. OXYCODONE HCL EXTENDED-RELEASE [Suspect]
     Indication: BACK PAIN
     Dosage: 20MG BID ORAL
     Route: 048
     Dates: start: 20050901
  2. OXYCODONE HCL EXTENDED-RELEASE [Suspect]
     Indication: OSTEOARTHRITIS
     Dosage: 20MG BID ORAL
     Route: 048
     Dates: start: 20050901
  3. OXYCODONE HCL EXTENDED-RELEASE [Suspect]
     Indication: SPINAL COLUMN STENOSIS
     Dosage: 20MG BID ORAL
     Route: 048
     Dates: start: 20050901

REACTIONS (2)
  - DRUG EFFECT DECREASED [None]
  - PHARMACEUTICAL PRODUCT COMPLAINT [None]
